FAERS Safety Report 20965351 (Version 2)
Quarter: 2022Q2

REPORT INFORMATION
  Report Type: Spontaneous
  Country: BR (occurrence: BR)
  Receive Date: 20220616
  Receipt Date: 20220625
  Transmission Date: 20220721
  Serious: Yes (Other)
  Sender: FDA-Public Use
  Company Number: BR-LUPIN PHARMACEUTICALS INC.-2022-08722

PATIENT
  Sex: Male

DRUGS (2)
  1. PREGABALIN [Suspect]
     Active Substance: PREGABALIN
     Indication: Anxiety
     Dosage: 75 MILLIGRAM, QD, TABLET
     Route: 048
     Dates: start: 20220512, end: 20220527
  2. PREGABALIN [Suspect]
     Active Substance: PREGABALIN
     Indication: Pain

REACTIONS (22)
  - Glaucoma [Unknown]
  - Arrhythmia [Unknown]
  - Dengue fever [Unknown]
  - COVID-19 [Unknown]
  - Labyrinthitis [Unknown]
  - Decreased appetite [Unknown]
  - Quality of life decreased [Not Recovered/Not Resolved]
  - Weight decreased [Unknown]
  - Insomnia [Recovered/Resolved]
  - Dry mouth [Not Recovered/Not Resolved]
  - Flatulence [Not Recovered/Not Resolved]
  - Hypertension [Unknown]
  - Memory impairment [Unknown]
  - Drug hypersensitivity [Unknown]
  - Migraine [Unknown]
  - Tinnitus [Unknown]
  - Photosensitivity reaction [Unknown]
  - Dizziness [Unknown]
  - Hyperacusis [Unknown]
  - Dry eye [Unknown]
  - Sinusitis [Unknown]
  - Headache [Unknown]
